FAERS Safety Report 19525140 (Version 2)
Quarter: 2021Q3

REPORT INFORMATION
  Report Type: Report from Study
  Country: None (occurrence: US)
  Receive Date: 20210712
  Receipt Date: 20210719
  Transmission Date: 20211014
  Serious: Yes (Hospitalization, Other)
  Sender: FDA-Public Use
  Company Number: US-ABBVIE-21K-163-3984904-00

PATIENT
  Age: 69 Year
  Sex: Male
  Weight: 101.24 kg

DRUGS (3)
  1. RINVOQ [Suspect]
     Active Substance: UPADACITINIB
     Indication: RHEUMATOID ARTHRITIS
     Route: 048
     Dates: start: 202007, end: 202101
  2. RINVOQ [Suspect]
     Active Substance: UPADACITINIB
     Route: 048
     Dates: start: 202102
  3. COVID?19 VACCINE [Concomitant]
     Indication: COVID-19 IMMUNISATION
     Dosage: JOHNSON AND JOHNSON
     Route: 030
     Dates: start: 20210321, end: 20210321

REACTIONS (4)
  - Rotator cuff syndrome [Not Recovered/Not Resolved]
  - Road traffic accident [Recovering/Resolving]
  - Spinal operation [Recovering/Resolving]
  - Spinal column injury [Recovering/Resolving]

NARRATIVE: CASE EVENT DATE: 202012
